FAERS Safety Report 7351377-9 (Version None)
Quarter: 2011Q1

REPORT INFORMATION
  Report Type: 
  Country: None (occurrence: None)
  Receive Date: 20110314
  Receipt Date: 20110307
  Transmission Date: 20110831
  Serious: Yes (Death, Life-Threatening, Hospitalization, Other)
  Sender: FDA-Public Use
  Company Number: PHHY2010JP79093

PATIENT
  Age: 59 Year
  Sex: Male
  Weight: 60 kg

DRUGS (14)
  1. RESTAMIN CORTIZON [Concomitant]
     Dates: start: 20100915
  2. NAIXAN [Concomitant]
     Dosage: 300 MG, UNK
     Route: 048
     Dates: start: 20100805
  3. FERROUS CITRATE [Concomitant]
     Dosage: 100 MG, UNK
     Route: 048
     Dates: start: 20100930, end: 20101013
  4. LOXOPROFEN [Concomitant]
     Dosage: 180 MG, UNK
     Route: 048
     Dates: start: 20100805, end: 20100901
  5. INTERFERON ALFA [Concomitant]
     Indication: METASTATIC RENAL CELL CARCINOMA
     Dosage: 3000000 IU, UNK
     Dates: start: 20090423, end: 20090617
  6. VOLTAREN [Concomitant]
     Dosage: 150 MG, UNK
     Dates: start: 20101014, end: 20101021
  7. SORAFENIB TOSILATE [Concomitant]
     Indication: METASTATIC RENAL CELL CARCINOMA
     Dosage: 800 MG, QD
     Route: 048
     Dates: start: 20090618, end: 20100217
  8. CRAVIT [Concomitant]
     Dosage: 500 MG, UNK
     Route: 048
     Dates: start: 20101014, end: 20101021
  9. TAKEPRON [Concomitant]
     Dosage: 30 MG, UNK
     Route: 048
     Dates: start: 20101014
  10. MUCOSTA [Concomitant]
     Dosage: 300 MEQ/KG, UNK
     Route: 048
  11. AFINITOR [Suspect]
     Indication: METASTATIC RENAL CELL CARCINOMA
     Dosage: 10 MG, QD
     Route: 048
     Dates: start: 20100514, end: 20101014
  12. AFINITOR [Suspect]
     Dosage: 10 MG QD
     Route: 048
     Dates: start: 20101102, end: 20101109
  13. SUNITINIB MALATE [Concomitant]
     Indication: METASTATIC RENAL CELL CARCINOMA
     Dosage: 50 MG, QD
     Route: 048
     Dates: start: 20100218, end: 20100430
  14. POLARAMINE [Concomitant]
     Dosage: 2 MG, UNK
     Route: 048
     Dates: start: 20100915

REACTIONS (11)
  - DISSEMINATED INTRAVASCULAR COAGULATION [None]
  - HEPATORENAL SYNDROME [None]
  - HEPATITIS B [None]
  - FAECES DISCOLOURED [None]
  - HEPATIC FAILURE [None]
  - MALAISE [None]
  - HYPOTENSION [None]
  - PNEUMONIA FUNGAL [None]
  - METASTASES TO ADRENALS [None]
  - METASTASES TO LUNG [None]
  - DELIRIUM [None]
